FAERS Safety Report 8453314-2 (Version None)
Quarter: 2012Q2

REPORT INFORMATION
  Report Type: 
  Country: None (occurrence: None)
  Receive Date: 20120620
  Receipt Date: 20120511
  Transmission Date: 20120825
  Serious: No
  Sender: FDA-Public Use
  Company Number: US-VERTEX PHARMACEUTICALS INC.-AE-2012-007017

PATIENT
  Sex: Male

DRUGS (3)
  1. INCIVEK [Suspect]
     Indication: HEPATITIS C
     Route: 048
     Dates: start: 20120412
  2. RIBAVIRIN [Concomitant]
     Indication: HEPATITIS C
     Dates: start: 20120412
  3. PEGYLATED INTERFERON ALPHA [Concomitant]
     Indication: HEPATITIS C
     Dates: start: 20120412

REACTIONS (5)
  - APHAGIA [None]
  - INSOMNIA [None]
  - TREMOR [None]
  - CHILLS [None]
  - FEELING JITTERY [None]
